FAERS Safety Report 9423399 (Version 1)
Quarter: 2013Q3

REPORT INFORMATION
  Report Type: Report from Study
  Country: BE (occurrence: BE)
  Receive Date: 20130726
  Receipt Date: 20130726
  Transmission Date: 20140515
  Serious: Yes (Hospitalization)
  Sender: FDA-Public Use
  Company Number: BE-ABBOTT-13P-013-1123335-00

PATIENT
  Age: 68 Year
  Sex: Female

DRUGS (10)
  1. HUMIRA [Suspect]
     Indication: ANKYLOSING SPONDYLITIS
     Dates: start: 20111118, end: 20130107
  2. HUMIRA [Suspect]
     Dates: start: 20130128
  3. GLICLAZIDE [Concomitant]
     Indication: DIABETES MELLITUS
  4. JANUVIA [Concomitant]
     Indication: DIABETES MELLITUS
  5. KINZALKOMB [Concomitant]
     Indication: HYPERTENSION
  6. CARDIOASPIRIN [Concomitant]
     Indication: NECK PAIN
  7. CRESTOR [Concomitant]
     Indication: HYPERCHOLESTEROLAEMIA
  8. MOTIFENE [Concomitant]
     Indication: ARTHRITIS
  9. MOTIFENE [Concomitant]
  10. MOTIFENE [Concomitant]

REACTIONS (4)
  - Inflammation [Recovered/Resolved]
  - Ankylosing spondylitis [Unknown]
  - Neck pain [Recovered/Resolved]
  - Pain [Recovered/Resolved]
